FAERS Safety Report 8248402-X (Version None)
Quarter: 2012Q1

REPORT INFORMATION
  Report Type: 
  Country: None (occurrence: None)
  Receive Date: 20120330
  Receipt Date: 20120326
  Transmission Date: 20120608
  Serious: Yes (Life-Threatening, Hospitalization)
  Sender: FDA-Public Use
  Company Number: FR-ASTRAZENECA-2012SE20571

PATIENT
  Age: 22698 Day
  Sex: Male

DRUGS (5)
  1. PLAVIX [Suspect]
     Route: 048
     Dates: start: 20110501, end: 20111004
  2. ATORVASTATIN [Suspect]
     Route: 048
     Dates: start: 20110501, end: 20110918
  3. PERINDOPRIL ERBUMINE [Suspect]
     Route: 048
     Dates: start: 20110501, end: 20110918
  4. ASPIRIN [Concomitant]
  5. TENORMIN [Suspect]
     Route: 048
     Dates: start: 20110501

REACTIONS (2)
  - HEPATITIS FULMINANT [None]
  - LARGE INTESTINE PERFORATION [None]
